FAERS Safety Report 6249899-7 (Version None)
Quarter: 2009Q2

REPORT INFORMATION
  Report Type: 
  Country: None (occurrence: None)
  Receive Date: 20090624
  Receipt Date: 20090616
  Transmission Date: 20091009
  Serious: Yes (Other)
  Sender: FDA-Public Use
  Company Number: ADR5082009

PATIENT
  Age: 17 Year
  Sex: Male

DRUGS (4)
  1. RISPERIDONE [Suspect]
     Indication: PSYCHOTIC DISORDER
     Dosage: 8 MG ORAL
     Route: 048
     Dates: start: 20090101, end: 20090301
  2. FLUOXETINE HCL [Concomitant]
  3. METHYLPHENIDATE HCL [Concomitant]
  4. VALPROATE SODIUM [Concomitant]

REACTIONS (5)
  - BLOOD CREATINE PHOSPHOKINASE INCREASED [None]
  - CATATONIA [None]
  - DRUG WITHDRAWAL SYNDROME [None]
  - LABILE BLOOD PRESSURE [None]
  - NEUROLEPTIC MALIGNANT SYNDROME [None]
